FAERS Safety Report 7789760-X (Version None)
Quarter: 2011Q3

REPORT INFORMATION
  Report Type: 
  Country: None (occurrence: None)
  Receive Date: 20110930
  Receipt Date: 20110401
  Transmission Date: 20111222
  Serious: No
  Sender: FDA-Public Use
  Company Number: US-ASTRAZENECA-2011SE18691

PATIENT
  Sex: Female
  Weight: 56.7 kg

DRUGS (4)
  1. ARIMIDEX [Suspect]
     Indication: BREAST CANCER
     Route: 048
     Dates: start: 20100401
  2. INTAL [Concomitant]
     Indication: ASTHMA
  3. FLONASE [Concomitant]
     Indication: ASTHMA
  4. FLOVENT [Concomitant]
     Indication: ASTHMA

REACTIONS (1)
  - MUSCLE SPASMS [None]
